FAERS Safety Report 5486429-1 (Version None)
Quarter: 2007Q4

REPORT INFORMATION
  Report Type: 
  Country: None (occurrence: None)
  Receive Date: 20071016
  Receipt Date: 20071005
  Transmission Date: 20080405
  Serious: Yes (Hospitalization)
  Sender: FDA-Public Use
  Company Number: JP-NOVOPROD-268011

PATIENT
  Age: 8 Year
  Sex: Female
  Weight: 18 kg

DRUGS (1)
  1. NORDITROPIN NORDIFLEX [Suspect]
     Indication: BODY HEIGHT BELOW NORMAL
     Dosage: 5.3 - 6 MG
     Route: 058
     Dates: start: 20050303, end: 20070913

REACTIONS (8)
  - APLASTIC ANAEMIA [None]
  - ARTHRALGIA [None]
  - BONE MARROW FAILURE [None]
  - DIARRHOEA [None]
  - INFLAMMATION [None]
  - PLATELET COUNT DECREASED [None]
  - PYREXIA [None]
  - WHITE BLOOD CELL COUNT DECREASED [None]
